FAERS Safety Report 5625508-2 (Version None)
Quarter: 2008Q1

REPORT INFORMATION
  Report Type: 
  Country: None (occurrence: None)
  Receive Date: 20080211
  Receipt Date: 20080131
  Transmission Date: 20080703
  Serious: Yes (Other)
  Sender: FDA-Public Use
  Company Number: 2008AP000352

PATIENT
  Age: 21 Year
  Sex: Female

DRUGS (5)
  1. PAROXETINE HCL [Suspect]
     Indication: DEPRESSION
     Dosage: TAB; PO; QD;  30 MG;TAB; PO; QD
     Route: 048
     Dates: start: 20000111
  2. PAROXETINE HCL [Suspect]
     Indication: DEPRESSION
     Dosage: TAB; PO; QD;  30 MG;TAB; PO; QD
     Route: 048
     Dates: start: 20030926
  3. CITALOPRAM HYDROBROMIDE [Concomitant]
  4. LOFEPRAMINE HYDROCHLORIDE (LOFEPRAMINE HYDROCHLORIDE) [Concomitant]
  5. DOSULEPIN HYDROCHLORIDE (DOSULEPIN HYDROCHLORIDE) [Concomitant]

REACTIONS (24)
  - AGGRESSION [None]
  - AGITATION [None]
  - ANXIETY [None]
  - CONFUSIONAL STATE [None]
  - DEPRESSED MOOD [None]
  - DEPRESSION [None]
  - DISTURBANCE IN ATTENTION [None]
  - DIZZINESS [None]
  - DRUG EXPOSURE DURING PREGNANCY [None]
  - DRUG WITHDRAWAL SYNDROME [None]
  - HYPERHIDROSIS [None]
  - LETHARGY [None]
  - MEMORY IMPAIRMENT [None]
  - MOOD SWINGS [None]
  - NAUSEA [None]
  - NIGHTMARE [None]
  - PANIC ATTACK [None]
  - PARAESTHESIA [None]
  - PREGNANCY [None]
  - SLEEP DISORDER [None]
  - SUICIDAL IDEATION [None]
  - SUICIDE ATTEMPT [None]
  - VOMITING [None]
  - WHIPLASH INJURY [None]
